FAERS Safety Report 10621609 (Version 1)
Quarter: 2014Q4

REPORT INFORMATION
  Report Type: Spontaneous
  Country: US (occurrence: None)
  Receive Date: 20141126
  Receipt Date: 20141126
  Transmission Date: 20150529
  Serious: Yes (Disabling)
  Sender: FDA-Public Use
  Company Number: None

PATIENT
  Age: 73 Year
  Sex: Male
  Weight: 73.94 kg

DRUGS (1)
  1. RANEXA [Suspect]
     Active Substance: RANOLAZINE
     Indication: DIZZINESS
     Dosage: 1 PILL
     Route: 048

REACTIONS (3)
  - Faecal incontinence [None]
  - Constipation [None]
  - Urine odour abnormal [None]

NARRATIVE: CASE EVENT DATE: 20140501
